FAERS Safety Report 8771358 (Version 1)
Quarter: 2012Q4

REPORT INFORMATION
  Report Type: 
  Country: CN (occurrence: CN)
  Receive Date: 20120905
  Receipt Date: 20120905
  Transmission Date: 20130627
  Serious: Yes (Other)
  Sender: FDA-Public Use
  Company Number: CN-ASTRAZENECA-2012SE65681

PATIENT
  Sex: Female
  Weight: 55.8 kg

DRUGS (1)
  1. CRESTOR [Suspect]
     Indication: ATHEROSCLEROSIS PROPHYLAXIS
     Route: 048
     Dates: start: 20100301, end: 20110301

REACTIONS (1)
  - Drug-induced liver injury [Recovered/Resolved]
